FAERS Safety Report 9927805 (Version 4)
Quarter: 2014Q2

REPORT INFORMATION
  Report Type: Report from Study
  Country: US (occurrence: US)
  Receive Date: 20140227
  Receipt Date: 20140422
  Transmission Date: 20141212
  Serious: Yes (Hospitalization)
  Sender: FDA-Public Use
  Company Number: US-ROCHE-1236347

PATIENT
  Age: 73 Year
  Sex: Female
  Weight: 62.5 kg

DRUGS (20)
  1. BLINDED PERTUZUMAB [Suspect]
     Indication: BREAST CANCER
     Dosage: LAST DOSE PRIOR TO SUBDURAL HEMATOMA: 21/MAY/2013?LAST DOSE PRIOR TO FACIAL HEMATOMA: 27/JAN/2014
     Route: 042
     Dates: start: 20120224
  2. TRASTUZUMAB EMTANSINE [Suspect]
     Indication: BREAST CANCER
     Dosage: LAST DOSE PRIOR TO SUBDURAL HEMATOMA: 237 MG ON 21/MAY/2013?LAST DOSE PRIOR TO SUBDURAL HEMATOMA: 23
     Route: 042
     Dates: start: 20120224
  3. METFORMIN [Concomitant]
     Indication: DIABETES MELLITUS
     Route: 065
     Dates: start: 20120224
  4. XALATAN [Concomitant]
     Indication: GLAUCOMA
     Route: 065
     Dates: start: 20040312
  5. QVAR [Concomitant]
     Indication: ASTHMA
     Dosage: 40 MCG/ACT AERS
     Route: 065
     Dates: start: 20040312, end: 20130923
  6. SEREVENT [Concomitant]
     Indication: ASTHMA
     Dosage: 21 MCG/ACT AERS
     Route: 065
     Dates: start: 20040312, end: 20130923
  7. ENALAPRIL MALEATE [Concomitant]
     Indication: BLOOD PRESSURE
     Route: 065
     Dates: start: 20050210
  8. ZOCOR [Concomitant]
     Indication: HYPERLIPIDAEMIA
     Route: 065
     Dates: start: 20110906
  9. OMEPRAZOLE [Concomitant]
     Indication: GASTROOESOPHAGEAL REFLUX DISEASE
     Route: 065
     Dates: start: 20120330
  10. CITALOPRAM HYDROBROMIDE [Concomitant]
     Indication: ANXIETY
     Route: 065
     Dates: start: 20100624, end: 20130923
  11. CITALOPRAM HYDROBROMIDE [Concomitant]
     Route: 065
     Dates: start: 20131009
  12. PLAVIX [Concomitant]
     Indication: CORONARY ARTERIAL STENT INSERTION
     Route: 065
     Dates: start: 20080228
  13. PROCHLORPERAZINE MALEATE [Concomitant]
     Indication: NAUSEA
     Route: 065
     Dates: start: 20111216
  14. MUCINEX [Concomitant]
     Indication: HYPERSENSITIVITY
     Route: 065
     Dates: start: 20101230
  15. EMLA CREAM [Concomitant]
     Indication: ANAESTHESIA
     Route: 065
     Dates: start: 20120128
  16. CALCIUM CITRATE WITH D [Concomitant]
     Indication: NUTRITIONAL SUPPLEMENTATION
     Dosage: 315-250MG
     Route: 065
     Dates: start: 20110906
  17. ASTEPRO [Concomitant]
     Indication: SEASONAL ALLERGY
     Route: 065
     Dates: start: 20110906
  18. TUMS [Concomitant]
     Indication: GASTROOESOPHAGEAL REFLUX DISEASE
     Route: 065
     Dates: start: 20120330
  19. IMODIUM A-D [Concomitant]
     Indication: DIARRHOEA
     Route: 065
     Dates: start: 20120801
  20. MAGNESIUM OXIDE [Concomitant]
     Indication: HYPOMAGNESAEMIA
     Route: 065
     Dates: start: 20130322

REACTIONS (1)
  - Subdural haematoma [Not Recovered/Not Resolved]
